FAERS Safety Report 8086595-8 (Version None)
Quarter: 2012Q1

REPORT INFORMATION
  Report Type: 
  Country: None (occurrence: None)
  Receive Date: 20120128
  Receipt Date: 20110512
  Transmission Date: 20120608
  Serious: No
  Sender: FDA-Public Use
  Company Number: US-ABBOTT-11P-163-0725197-00

PATIENT
  Age: 54 Year
  Sex: Male

DRUGS (25)
  1. HUMIRA [Suspect]
     Indication: CROHN'S DISEASE
     Dosage: DAY ONE
     Dates: start: 20110504
  2. TESTOSTERONE [Concomitant]
     Indication: BLOOD TESTOSTERONE DECREASED
  3. HYDROCHLOROTHIAZIDE [Concomitant]
     Indication: HYPERTENSION
  4. PLAVIX [Concomitant]
     Indication: CARDIAC DISORDER
  5. CALCIUM [Concomitant]
     Indication: MINERAL SUPPLEMENTATION
  6. VITAMIN B-12 [Concomitant]
     Indication: SUPPLEMENTATION THERAPY
  7. VISTARIL [Concomitant]
     Indication: ANXIETY
  8. HUMIRA [Suspect]
  9. BELLADONA WITH PHENOBARBITOL [Concomitant]
     Indication: ABDOMINAL PAIN
  10. FLOMAX [Concomitant]
     Indication: BENIGN PROSTATIC HYPERPLASIA
  11. ALLEGRA [Concomitant]
     Indication: HYPERSENSITIVITY
  12. CELEBREX [Concomitant]
     Indication: EPIDIDYMITIS
  13. CYMBALTA [Concomitant]
     Indication: DEPRESSION
  14. LIPITOR [Concomitant]
     Indication: BLOOD CHOLESTEROL INCREASED
  15. IRON [Concomitant]
     Indication: MINERAL SUPPLEMENTATION
  16. MULTI-VITAMINS [Concomitant]
     Indication: VITAMIN SUPPLEMENTATION
  17. FOLIC ACID [Concomitant]
     Indication: SUPPLEMENTATION THERAPY
  18. NASONEX [Concomitant]
     Indication: HYPERSENSITIVITY
  19. TOPROL-XL [Concomitant]
     Indication: HYPERTENSION
  20. IMURAN [Concomitant]
     Indication: CROHN'S DISEASE
  21. HUMIRA [Suspect]
     Dosage: DAY 15
  22. FISH OIL [Concomitant]
     Indication: SUPPLEMENTATION THERAPY
  23. NEXIUM [Concomitant]
     Indication: HIATUS HERNIA
  24. CYMBALTA [Concomitant]
     Indication: ANXIETY
  25. ASPIRIN [Concomitant]
     Indication: CARDIAC DISORDER

REACTIONS (2)
  - ABDOMINAL PAIN [None]
  - DIARRHOEA [None]
